FAERS Safety Report 24995126 (Version 1)
Quarter: 2025Q1

REPORT INFORMATION
  Report Type: Spontaneous
  Country: US (occurrence: US)
  Receive Date: 20250221
  Receipt Date: 20250221
  Transmission Date: 20250409
  Serious: No
  Sender: ABBVIE
  Company Number: US-ABBVIE-6133554

PATIENT
  Age: 72 Year
  Sex: Female

DRUGS (9)
  1. ESCITALOPRAM [Suspect]
     Active Substance: ESCITALOPRAM OXALATE
     Indication: Product used for unknown indication
     Route: 063
     Dates: start: 20241226
  2. ESCITALOPRAM [Suspect]
     Active Substance: ESCITALOPRAM OXALATE
     Indication: Product used for unknown indication
     Route: 063
     Dates: end: 20241208
  3. DONEPEZIL [Concomitant]
     Active Substance: DONEPEZIL
     Indication: Product used for unknown indication
     Dosage: DAILY DOSE: 10.0 MILLIGRAMS (10 MILLIGRAMS, 1 IN 1 DAY)
  4. PLAVIX [Concomitant]
     Active Substance: CLOPIDOGREL BISULFATE
     Indication: Product used for unknown indication
     Dosage: DAILY DOSE: 75.0 MILLIGRAMS (75 MILLIGRAMS, 1 IN 1 DAY)
  5. MEMANTINE [Concomitant]
     Active Substance: MEMANTINE
     Indication: Product used for unknown indication
     Dosage: DAILY DOSE: 20.0 MILLIGRAMS (10 MILLIGRAMS, 2 IN 1 DAY)
  6. SYNTHROID [Concomitant]
     Active Substance: LEVOTHYROXINE SODIUM
     Indication: Product used for unknown indication
     Dosage: DAILY DOSE: 112.0 MICROGRAMS (112 MICROGRAMS, 1 IN 1 DAY)
  7. RESTASIS [Concomitant]
     Active Substance: CYCLOSPORINE
     Indication: Product used for unknown indication
     Dosage: DAILY DOSE: 2.0 DROPS (1 DROP, 1 IN 12 HOURS), FREQUENCY TEXT: 1 IN 12 HOUR
  8. FUROSEMIDE [Concomitant]
     Active Substance: FUROSEMIDE
     Indication: Product used for unknown indication
     Dosage: (LASIX ), DAILY DOSE: 40.0 MILLIGRAMS (40 MILLIGRAMS, 1 IN 1 DAY)
  9. LEQEMBI [Suspect]
     Active Substance: LECANEMAB-IRMB
     Indication: Cognitive disorder
     Route: 042
     Dates: start: 20241209, end: 20241209

REACTIONS (3)
  - Headache [Recovered/Resolved]
  - Cognitive disorder [Recovered/Resolved]
  - Fatigue [Recovered/Resolved]

NARRATIVE: CASE EVENT DATE: 20241222
